FAERS Safety Report 8997445 (Version 1)
Quarter: 2013Q1

REPORT INFORMATION
  Report Type: Spontaneous
  Country: US (occurrence: US)
  Receive Date: 20130104
  Receipt Date: 20130104
  Transmission Date: 20140127
  Serious: Yes (Death)
  Sender: FDA-Public Use
  Company Number: US-PFIZER INC-2013001270

PATIENT
  Age: 77 Year
  Sex: Female

DRUGS (1)
  1. REVATIO [Suspect]
     Dosage: 40 MG, 3X/DAY
     Dates: start: 20120127

REACTIONS (2)
  - Pneumonia [Fatal]
  - Off label use [Unknown]
